FAERS Safety Report 8458624-0 (Version None)
Quarter: 2012Q2

REPORT INFORMATION
  Report Type: 
  Country: None (occurrence: None)
  Receive Date: 20120622
  Receipt Date: 20120611
  Transmission Date: 20120825
  Serious: No
  Sender: FDA-Public Use
  Company Number: US-JNJFOC-20120516054

PATIENT
  Sex: Male

DRUGS (5)
  1. PERCOCET [Concomitant]
     Indication: PAIN
     Route: 065
  2. DURAGESIC-100 [Suspect]
     Indication: PRODUCT USED FOR UNKNOWN INDICATION
     Route: 062
     Dates: start: 20050101
  3. DURAGESIC-100 [Suspect]
     Dosage: 100 AND 50 UG/HR PATCH
     Route: 062
  4. FENTANYL-100 [Suspect]
     Indication: PRODUCT USED FOR UNKNOWN INDICATION
     Route: 062
  5. DURAGESIC-100 [Suspect]
     Route: 062

REACTIONS (4)
  - PRODUCT QUALITY ISSUE [None]
  - PAIN [None]
  - PRODUCT OUTER PACKAGING ISSUE [None]
  - WRONG TECHNIQUE IN DRUG USAGE PROCESS [None]
